FAERS Safety Report 4486131-9 (Version None)
Quarter: 2004Q4

REPORT INFORMATION
  Report Type: 
  Country: None (occurrence: None)
  Receive Date: 20041021
  Receipt Date: 20040922
  Transmission Date: 20050328
  Serious: Yes (Disabling)
  Sender: FDA-Public Use
  Company Number: A01200404750

PATIENT
  Age: 32 Year
  Sex: Female

DRUGS (3)
  1. DANOL - (DANAZOL) - CAPSULE - 200 MG / CAPSULE - 200 MG / CAPSULE - 20 [Suspect]
     Indication: ENDOMETRIOSIS
     Dosage: 200 MG TID / 200 MG BID/200 MG TID ORAL
     Route: 048
     Dates: start: 20040917, end: 20040920
  2. DANOL - (DANAZOL) - CAPSULE - 200 MG / CAPSULE - 200 MG / CAPSULE - 20 [Suspect]
     Indication: ENDOMETRIOSIS
     Dosage: 200 MG TID / 200 MG BID/200 MG TID ORAL
     Route: 048
     Dates: start: 20040921, end: 20040921
  3. DANOL - (DANAZOL) - CAPSULE - 200 MG / CAPSULE - 200 MG / CAPSULE - 20 [Suspect]
     Indication: ENDOMETRIOSIS
     Dosage: 200 MG TID / 200 MG BID/200 MG TID ORAL
     Route: 048
     Dates: start: 20040922

REACTIONS (3)
  - SLEEP ATTACKS [None]
  - SOMNOLENCE [None]
  - TREATMENT NONCOMPLIANCE [None]
